FAERS Safety Report 22298627 (Version 2)
Quarter: 2023Q2

REPORT INFORMATION
  Report Type: Spontaneous
  Country: US (occurrence: US)
  Receive Date: 20230509
  Receipt Date: 20230530
  Transmission Date: 20230722
  Serious: Yes (Other)
  Sender: FDA-Public Use
  Company Number: US-PFIZER INC-PV202200053714

PATIENT
  Age: 59 Year
  Sex: Female
  Weight: 61.23 kg

DRUGS (6)
  1. PRISTIQ EXTENDED-RELEASE [Suspect]
     Active Substance: DESVENLAFAXINE SUCCINATE
     Indication: Pain
     Dosage: 50 MG, 2X/DAY (1 IN THE MORNING AND 1 IN PM, BY MOUTH)
     Route: 048
     Dates: start: 2007
  2. PRISTIQ EXTENDED-RELEASE [Suspect]
     Active Substance: DESVENLAFAXINE SUCCINATE
     Dosage: 50 MG, 2X/DAY
     Route: 048
     Dates: start: 2007
  3. BYSTOLIC [Concomitant]
     Active Substance: NEBIVOLOL HYDROCHLORIDE
     Dosage: 10 MG, 1X/DAY (BEDTIME)
  4. CLONAZEPAM [Concomitant]
     Active Substance: CLONAZEPAM
     Dosage: 1 MG, 4X/DAY
     Dates: start: 199410
  5. FUROSEMIDE [Concomitant]
     Active Substance: FUROSEMIDE
     Dosage: 20MG 1 AND HALF PILLS DAILY IN THE AM=30MG
     Dates: start: 199410
  6. OXYCODONE [Concomitant]
     Active Substance: OXYCODONE
     Dosage: 10X4 TIMES A DAY
     Dates: start: 199410

REACTIONS (7)
  - Breast cancer [Unknown]
  - Breast cancer metastatic [Unknown]
  - Fatigue [Unknown]
  - Asthenia [Unknown]
  - Intentional product misuse [Unknown]
  - Off label use [Unknown]
  - Drug effective for unapproved indication [Unknown]

NARRATIVE: CASE EVENT DATE: 20070101
